FAERS Safety Report 17283225 (Version 4)
Quarter: 2020Q3

REPORT INFORMATION
  Report Type: Spontaneous
  Country: US (occurrence: US)
  Receive Date: 20200117
  Receipt Date: 20200901
  Transmission Date: 20201102
  Serious: Yes (Hospitalization, Other)
  Sender: FDA-Public Use
  Company Number: US-PFIZER INC-2020021880

PATIENT
  Age: 70 Year
  Sex: Female

DRUGS (1)
  1. XELJANZ XR [Suspect]
     Active Substance: TOFACITINIB CITRATE
     Indication: RHEUMATOID ARTHRITIS
     Dosage: 11 MG, 1X/DAY
     Route: 048
     Dates: start: 20191210

REACTIONS (6)
  - Staphylococcal infection [Recovered/Resolved]
  - Muscle spasms [Unknown]
  - Sepsis [Recovered/Resolved]
  - Localised infection [Unknown]
  - Peripheral swelling [Unknown]
  - Pyrexia [Recovered/Resolved]
